FAERS Safety Report 13680830 (Version 1)
Quarter: 2017Q2

REPORT INFORMATION
  Report Type: Spontaneous
  Country: US (occurrence: US)
  Receive Date: 20170623
  Receipt Date: 20170623
  Transmission Date: 20170830
  Serious: Yes (Hospitalization, Other)
  Sender: FDA-Public Use
  Company Number: US-AMGEN-USASP2017092869

PATIENT
  Age: 73 Year
  Sex: Male

DRUGS (1)
  1. PROLIA [Suspect]
     Active Substance: DENOSUMAB
     Indication: OSTEOPOROSIS
     Dosage: 60 MG, UNK
     Route: 065

REACTIONS (5)
  - Rib fracture [Unknown]
  - Fall [Unknown]
  - Cardiac failure congestive [Recovered/Resolved]
  - Normal pressure hydrocephalus [Not Recovered/Not Resolved]
  - Parkinson^s disease [Unknown]
